FAERS Safety Report 4976538-5 (Version None)
Quarter: 2006Q2

REPORT INFORMATION
  Report Type: 
  Country: None (occurrence: None)
  Receive Date: 20060418
  Receipt Date: 20060418
  Transmission Date: 20061013
  Serious: Yes (Death)
  Sender: FDA-Public Use
  Company Number: None

PATIENT
  Sex: Male
  Weight: 66.1 kg

DRUGS (2)
  1. GEMCITABINE [Suspect]
     Indication: BLADDER CANCER
     Dosage: 3600 MG
     Dates: start: 20040603, end: 20040610
  2. TAXOL [Suspect]
     Dosage: 300 MG
     Dates: start: 20040603, end: 20040603

REACTIONS (2)
  - DYSPNOEA [None]
  - FAILURE TO THRIVE [None]
